FAERS Safety Report 10222986 (Version 1)
Quarter: 2014Q2

REPORT INFORMATION
  Report Type: Spontaneous
  Country: US (occurrence: None)
  Receive Date: 20140606
  Receipt Date: 20140606
  Transmission Date: 20141212
  Serious: Yes (Other)
  Sender: FDA-Public Use
  Company Number: None

PATIENT
  Age: 41 Year
  Sex: Female

DRUGS (1)
  1. MODAFINIL 200MG [Suspect]
     Route: 048

REACTIONS (2)
  - Product odour abnormal [None]
  - Skin odour abnormal [None]
